FAERS Safety Report 5046542-X (Version None)
Quarter: 2006Q3

REPORT INFORMATION
  Report Type: 
  Country: None (occurrence: None)
  Receive Date: 20060710
  Receipt Date: 20060614
  Transmission Date: 20061208
  Serious: Yes (Other)
  Sender: FDA-Public Use
  Company Number: PHEH2006US07821

PATIENT
  Age: 66 Year
  Sex: Male

DRUGS (4)
  1. ZOMETA [Suspect]
     Indication: METASTASES TO BONE
     Dosage: 4 MG, UNK
     Dates: start: 20050701, end: 20050901
  2. CASODEX [Concomitant]
     Dosage: 50MG QD
     Dates: start: 20060420, end: 20060520
  3. CISPLATIN [Concomitant]
     Indication: NEOPLASM MALIGNANT
     Dosage: UNK WKLY
     Dates: start: 20040101
  4. LUPRON [Concomitant]
     Indication: PROSTATE CANCER
     Dates: start: 20060301

REACTIONS (3)
  - OSTEONECROSIS [None]
  - PAIN IN JAW [None]
  - TOOTHACHE [None]
